FAERS Safety Report 8986715 (Version 1)
Quarter: 2012Q4

REPORT INFORMATION
  Report Type: 
  Country: ES (occurrence: ES)
  Receive Date: 20121226
  Receipt Date: 20121226
  Transmission Date: 20130627
  Serious: Yes (Hospitalization)
  Sender: FDA-Public Use
  Company Number: ES-MYLANLABS-2012S1025812

PATIENT
  Age: 63 Year
  Sex: Female

DRUGS (4)
  1. RAMIPRIL [Suspect]
     Route: 065
  2. SPIRONOLACTONE [Suspect]
     Route: 065
  3. BISOPROLOL [Concomitant]
     Route: 065
  4. DIGOXIN [Concomitant]
     Route: 065

REACTIONS (2)
  - Hyperkalaemia [Unknown]
  - Atrioventricular block [Unknown]
